FAERS Safety Report 23750604 (Version 14)
Quarter: 2024Q4

REPORT INFORMATION
  Report Type: Spontaneous
  Country: CA (occurrence: CA)
  Receive Date: 20240417
  Receipt Date: 20241211
  Transmission Date: 20250115
  Serious: Yes (Hospitalization, Other)
  Sender: CELLTRION
  Company Number: CA-CELLTRION INC.-2024CA003026

PATIENT

DRUGS (14)
  1. INFLECTRA [Suspect]
     Active Substance: INFLIXIMAB-DYYB
     Indication: Melkersson-Rosenthal syndrome
     Dosage: 500 MG, EVERY 0, 2, 6, THEN EVERY 6 WEEKS
     Route: 042
     Dates: start: 20240229, end: 20240229
  2. INFLECTRA [Suspect]
     Active Substance: INFLIXIMAB-DYYB
     Dosage: 600 MG, WEEK 0 (RELOAD Q 0, 2, 6, THEN EVERY 6 WEEKS,REINDUCTION, WEEK 0, 2 )
     Route: 042
     Dates: start: 20240518
  3. INFLECTRA [Suspect]
     Active Substance: INFLIXIMAB-DYYB
     Dosage: 600 MG, WEEK 2 (RELOAD Q 0, 2, 6, THEN EVERY 6 WEEKS, REINDUCTION, WEEK 0, 2)
     Route: 042
     Dates: start: 20240601
  4. INFLECTRA [Suspect]
     Active Substance: INFLIXIMAB-DYYB
     Dosage: 500 MG, AFTER 4 WEEKS (EVERY 0, 2, 6, THEN EVERY 6 WEEKS) (AT WEEK 6, THEN EVERY 6 WEEKS)
     Route: 042
     Dates: start: 20240628
  5. INFLECTRA [Suspect]
     Active Substance: INFLIXIMAB-DYYB
     Dosage: 500 MG, EVERY 6 WEEKS
     Route: 042
     Dates: start: 20240813
  6. INFLECTRA [Suspect]
     Active Substance: INFLIXIMAB-DYYB
     Dosage: 1000 MG, AFTER 10 WEEKS 2 DAYS (1000 MG, EVERY 4 WEEKS)
     Route: 042
     Dates: start: 20241024
  7. INFLECTRA [Suspect]
     Active Substance: INFLIXIMAB-DYYB
     Dosage: 1000 MG, 5 WEEKS AND 4 DAY (EVERY 4 WEEKS)
     Route: 042
     Dates: start: 20241202
  8. AMLODIPINE [Concomitant]
     Active Substance: AMLODIPINE BESYLATE
     Dosage: 1 DF
  9. ESCITALOPRAM [Concomitant]
     Active Substance: ESCITALOPRAM OXALATE
     Dosage: 1 DF
  10. FOLIC ACID [Concomitant]
     Active Substance: FOLIC ACID
     Dosage: 1 DF
  11. METFORMIN [Concomitant]
     Active Substance: METFORMIN HYDROCHLORIDE
     Dosage: 1 DF
  12. METHOTREXATE [Concomitant]
     Active Substance: METHOTREXATE
     Dosage: 1 DF
  13. PANTOPRAZOLE [Concomitant]
     Active Substance: PANTOPRAZOLE
     Dosage: 1 DF
  14. ROSUVASTATIN [Concomitant]
     Active Substance: ROSUVASTATIN
     Dosage: 1 DF

REACTIONS (16)
  - Condition aggravated [Recovering/Resolving]
  - Pharyngitis bacterial [Recovered/Resolved]
  - Pharyngeal swelling [Recovered/Resolved]
  - Dysphagia [Unknown]
  - Diarrhoea [Unknown]
  - Vomiting [Unknown]
  - Kidney infection [Recovering/Resolving]
  - Renal impairment [Unknown]
  - Urinary retention [Not Recovered/Not Resolved]
  - Tooth abscess [Unknown]
  - Thrombosis [Unknown]
  - Cystitis [Not Recovered/Not Resolved]
  - Pyrexia [Unknown]
  - Nausea [Recovered/Resolved]
  - Weight increased [Unknown]
  - Off label use [Unknown]

NARRATIVE: CASE EVENT DATE: 20240101
